FAERS Safety Report 12161332 (Version 1)
Quarter: 2016Q1

REPORT INFORMATION
  Report Type: Report from Study
  Country: SK (occurrence: SK)
  Receive Date: 20160308
  Receipt Date: 20160308
  Transmission Date: 20160526
  Serious: Yes (Hospitalization)
  Sender: FDA-Public Use
  Company Number: SK-BIOGEN-2016BI00195857

PATIENT
  Sex: Female

DRUGS (1)
  1. AVONEX [Suspect]
     Active Substance: INTERFERON BETA-1A
     Indication: MULTIPLE SCLEROSIS
     Dates: start: 201210

REACTIONS (2)
  - Internal fixation of spine [Recovered/Resolved with Sequelae]
  - Radicular syndrome [Recovered/Resolved with Sequelae]

NARRATIVE: CASE EVENT DATE: 20150402
